FAERS Safety Report 17882242 (Version 3)
Quarter: 2020Q4

REPORT INFORMATION
  Report Type: Report from Study
  Country: CA (occurrence: CA)
  Receive Date: 20200610
  Receipt Date: 20201229
  Transmission Date: 20210113
  Serious: Yes (Death, Hospitalization)
  Sender: FDA-Public Use
  Company Number: CA-JNJFOC-20200513668

PATIENT
  Age: 63 Year
  Sex: Female
  Weight: 92 kg

DRUGS (2)
  1. STELARA [Suspect]
     Active Substance: USTEKINUMAB
  2. STELARA [Suspect]
     Active Substance: USTEKINUMAB
     Indication: PSORIASIS
     Route: 058
     Dates: start: 20110713

REACTIONS (4)
  - Lung cancer metastatic [Fatal]
  - Oedema due to cardiac disease [Unknown]
  - Pulmonary oedema [Unknown]
  - Influenza [Unknown]

NARRATIVE: CASE EVENT DATE: 20200419
